FAERS Safety Report 20309148 (Version 1)
Quarter: 2022Q1

REPORT INFORMATION
  Report Type: Report from Study
  Country: US (occurrence: None)
  Receive Date: 20220107
  Receipt Date: 20220107
  Transmission Date: 20220423
  Serious: Yes (Death)
  Sender: FDA-Public Use
  Company Number: 2022A007475

PATIENT
  Age: 23682 Day
  Sex: Female

DRUGS (2)
  1. FASENRA [Suspect]
     Active Substance: BENRALIZUMAB
     Indication: Lung carcinoma cell type unspecified stage 0
     Dosage: 1 PEN30MG/ML EVERY EIGHT WEEKS
     Route: 058
     Dates: start: 202111
  2. FASENRA [Suspect]
     Active Substance: BENRALIZUMAB
     Indication: Asthma
     Dosage: 1 PEN30MG/ML EVERY EIGHT WEEKS
     Route: 058
     Dates: start: 202111

REACTIONS (1)
  - Death [Fatal]

NARRATIVE: CASE EVENT DATE: 20211216
